FAERS Safety Report 12108993 (Version 1)
Quarter: 2016Q1

REPORT INFORMATION
  Report Type: Spontaneous
  Country: JP (occurrence: JP)
  Receive Date: 20160224
  Receipt Date: 20160224
  Transmission Date: 20160526
  Serious: Yes (Other)
  Sender: FDA-Public Use
  Company Number: JP-BRISTOL-MYERS SQUIBB COMPANY-BMS-2015-027891

PATIENT
  Age: 68 Year
  Sex: Male

DRUGS (7)
  1. ERBITUX [Suspect]
     Active Substance: CETUXIMAB
     Indication: SQUAMOUS CELL CARCINOMA OF HEAD AND NECK
     Dosage: 5 UNK, UNK
     Route: 042
     Dates: start: 20130930, end: 20140306
  2. 5-FU                               /00098801/ [Suspect]
     Active Substance: FLUOROURACIL
     Indication: SQUAMOUS CELL CARCINOMA OF HEAD AND NECK
     Route: 042
  3. 5-FU                               /00098801/ [Suspect]
     Active Substance: FLUOROURACIL
     Dosage: UNK
  4. CARBOPLATIN. [Suspect]
     Active Substance: CARBOPLATIN
     Dosage: UNK
  5. ERBITUX [Suspect]
     Active Substance: CETUXIMAB
     Dosage: UNK
     Dates: end: 20140529
  6. PACLITAXEL. [Suspect]
     Active Substance: PACLITAXEL
     Indication: SQUAMOUS CELL CARCINOMA OF HEAD AND NECK
     Dosage: UNK
  7. CARBOPLATIN. [Suspect]
     Active Substance: CARBOPLATIN
     Indication: SQUAMOUS CELL CARCINOMA OF HEAD AND NECK
     Dosage: UNK
     Route: 042

REACTIONS (12)
  - Decreased appetite [Recovered/Resolved]
  - Anaemia [Recovering/Resolving]
  - Blood lactate dehydrogenase increased [Recovered/Resolved]
  - Syncope [Recovering/Resolving]
  - Neutrophil count decreased [Recovered/Resolved]
  - Alanine aminotransferase increased [Recovered/Resolved]
  - Dry skin [Not Recovered/Not Resolved]
  - White blood cell count decreased [Recovered/Resolved]
  - Nausea [Recovered/Resolved]
  - Dermatitis acneiform [Not Recovered/Not Resolved]
  - Aspartate aminotransferase increased [Recovered/Resolved]
  - Hypocalcaemia [Recovered/Resolved]

NARRATIVE: CASE EVENT DATE: 20131001
